FAERS Safety Report 6591143-5 (Version None)
Quarter: 2010Q1

REPORT INFORMATION
  Report Type: 
  Country: None (occurrence: None)
  Receive Date: 20100219
  Receipt Date: 20090623
  Transmission Date: 20100710
  Serious: No
  Sender: FDA-Public Use
  Company Number: US-BRISTOL-MYERS SQUIBB COMPANY-14675037

PATIENT
  Age: 45 Year
  Sex: Female
  Weight: 43 kg

DRUGS (2)
  1. KENALOG-10 [Suspect]
     Indication: EYELID CYST
     Dates: start: 20090622
  2. MOTRIN [Concomitant]

REACTIONS (4)
  - BLOOD PRESSURE INCREASED [None]
  - DIZZINESS [None]
  - HEART RATE INCREASED [None]
  - PRURITUS GENERALISED [None]
